FAERS Safety Report 17482238 (Version 1)
Quarter: 2020Q1

REPORT INFORMATION
  Report Type: Spontaneous
  Country: IE (occurrence: GB)
  Receive Date: 20200302
  Receipt Date: 20200302
  Transmission Date: 20200409
  Serious: Yes (Other)
  Sender: FDA-Public Use
  Company Number: GB-GLAXOSMITHKLINE-GB2020033973

PATIENT
  Sex: Female

DRUGS (1)
  1. TRELEGY ELLIPTA [Suspect]
     Active Substance: FLUTICASONE FUROATE\UMECLIDINIUM BROMIDE\VILANTEROL TRIFENATATE
     Indication: PRODUCT USED FOR UNKNOWN INDICATION
     Dosage: UNK
     Dates: end: 20200217

REACTIONS (10)
  - Blindness transient [Recovering/Resolving]
  - Resuscitation [Unknown]
  - Lung neoplasm malignant [Unknown]
  - Emphysema [Unknown]
  - Eyelid function disorder [Unknown]
  - Eye pain [Recovered/Resolved]
  - Blood pressure decreased [Unknown]
  - Hallucination [Unknown]
  - Treatment noncompliance [Unknown]
  - Head discomfort [Unknown]

NARRATIVE: CASE EVENT DATE: 20200219
